FAERS Safety Report 5202377-6 (Version None)
Quarter: 2006Q4

REPORT INFORMATION
  Report Type: 
  Country: None (occurrence: None)
  Receive Date: 20061012
  Receipt Date: 20060612
  Transmission Date: 20070319
  Serious: No
  Sender: FDA-Public Use
  Company Number: 2006S1000111

PATIENT
  Age: 66 Year
  Sex: Female
  Weight: 124.5 kg

DRUGS (6)
  1. CUBICIN [Suspect]
     Indication: PYREXIA
     Dosage: Q24H; IV
     Route: 042
     Dates: start: 20060501, end: 20060501
  2. ROCEPHIN [Concomitant]
  3. CIPROFLOXACIN [Concomitant]
  4. MAXZIDE [Concomitant]
  5. CARDIZEM [Concomitant]
  6. WELLBUTRIN [Concomitant]

REACTIONS (4)
  - BLOOD CREATINE PHOSPHOKINASE INCREASED [None]
  - MUSCULOSKELETAL STIFFNESS [None]
  - PAIN IN EXTREMITY [None]
  - THERAPEUTIC RESPONSE UNEXPECTED [None]
